FAERS Safety Report 5003064-X (Version None)
Quarter: 2006Q2

REPORT INFORMATION
  Report Type: 
  Country: None (occurrence: None)
  Receive Date: 20060516
  Receipt Date: 20050711
  Transmission Date: 20061013
  Serious: Yes (Other)
  Sender: FDA-Public Use
  Company Number: US-MERCK-0507USA01440

PATIENT
  Age: 67 Year
  Sex: Male
  Weight: 92 kg

DRUGS (6)
  1. VIOXX [Suspect]
     Indication: OSTEOARTHRITIS
     Route: 048
     Dates: start: 20021125, end: 20021128
  2. VIOXX [Suspect]
     Route: 048
     Dates: start: 20021129
  3. VIOXX [Suspect]
     Indication: GOUT
     Route: 048
     Dates: start: 20021125, end: 20021128
  4. VIOXX [Suspect]
     Route: 048
     Dates: start: 20021129
  5. ACIPHEX [Concomitant]
     Route: 065
  6. COLCHICINE [Concomitant]
     Route: 065

REACTIONS (10)
  - CEREBROVASCULAR ACCIDENT [None]
  - EATING DISORDER [None]
  - GASTRIC DISORDER [None]
  - GOUT [None]
  - INJURY [None]
  - JOINT EFFUSION [None]
  - MYOCARDIAL INFARCTION [None]
  - OVERDOSE [None]
  - PAIN [None]
  - POLYARTHRITIS [None]
